FAERS Safety Report 23871192 (Version 1)
Quarter: 2024Q2

REPORT INFORMATION
  Report Type: Spontaneous
  Country: CA (occurrence: CA)
  Receive Date: 20240519
  Receipt Date: 20240519
  Transmission Date: 20240716
  Serious: Yes (Life-Threatening, Hospitalization, Other)
  Sender: FDA-Public Use
  Company Number: CA-SANDOZ-SDZ2024CA049748

PATIENT
  Age: 59 Year
  Sex: Female

DRUGS (2)
  1. AVONEX [Suspect]
     Active Substance: INTERFERON BETA-1A
     Indication: Relapsing multiple sclerosis
     Dosage: 30 UG, QW
     Route: 030
  2. OLANZAPINE [Suspect]
     Active Substance: OLANZAPINE
     Indication: Anxiety
     Dosage: UNK
     Route: 050

REACTIONS (15)
  - Abdominal discomfort [Recovered/Resolved]
  - Aneurysm [Recovered/Resolved]
  - Aneurysm ruptured [Recovered/Resolved]
  - Brain injury [Recovered/Resolved]
  - Colitis ischaemic [Recovered/Resolved]
  - Crying [Recovered/Resolved]
  - Dysphagia [Recovered/Resolved]
  - Gastrointestinal procedural complication [Recovered/Resolved]
  - Gastrooesophageal reflux disease [Recovered/Resolved]
  - Multiple sclerosis [Recovered/Resolved]
  - Pharyngeal mass [Recovered/Resolved]
  - Procedural complication [Recovered/Resolved]
  - Productive cough [Recovered/Resolved]
  - Weight increased [Recovered/Resolved]
  - Anxiety [Recovered/Resolved]
